FAERS Safety Report 18068474 (Version 2)
Quarter: 2020Q3

REPORT INFORMATION
  Report Type: Report from Study
  Country: CA (occurrence: CA)
  Receive Date: 20200724
  Receipt Date: 20200903
  Transmission Date: 20201103
  Serious: Yes (Other)
  Sender: FDA-Public Use
  Company Number: CA-SAMSUNG BIOEPIS-SB-2020-10385

PATIENT
  Age: 53 Year
  Sex: Female
  Weight: 48.7 kg

DRUGS (3)
  1. RENFLEXIS [Suspect]
     Active Substance: INFLIXIMAB-ABDA
     Indication: RHEUMATOID ARTHRITIS
     Route: 042
     Dates: start: 20191003, end: 202001
  2. ANCEF [Concomitant]
     Active Substance: CEFAZOLIN SODIUM
     Indication: PRODUCT USED FOR UNKNOWN INDICATION
     Dosage: UNKNOWN
     Route: 042
     Dates: start: 20200229, end: 20200303
  3. KEFLEX [Concomitant]
     Active Substance: CEPHALEXIN
     Indication: PRODUCT USED FOR UNKNOWN INDICATION
     Route: 048
     Dates: start: 20200304, end: 20200315

REACTIONS (4)
  - Arthralgia [Unknown]
  - Joint stiffness [Unknown]
  - Osteomyelitis [Unknown]
  - Wound infection [Unknown]
